FAERS Safety Report 9513980 (Version 2)
Quarter: 2013Q4

REPORT INFORMATION
  Report Type: Spontaneous
  Country: FR (occurrence: FR)
  Receive Date: 20130910
  Receipt Date: 20131112
  Transmission Date: 20140711
  Serious: Yes (Hospitalization)
  Sender: FDA-Public Use
  Company Number: FR-ELI_LILLY_AND_COMPANY-FR201308009777

PATIENT
  Age: 63 Year
  Sex: Female

DRUGS (19)
  1. CYMBALTA [Suspect]
     Dosage: 90 MG, QD
     Route: 048
     Dates: start: 20130404
  2. CYMBALTA [Suspect]
     Dosage: 120 MG, QD
     Route: 048
     Dates: end: 20130525
  3. SOLIAN [Suspect]
     Dosage: 50 MG, QD
     Route: 048
     Dates: start: 20130517
  4. LOXEN [Suspect]
     Dosage: 60 MG, PRN
     Route: 048
     Dates: start: 20130516
  5. AMLODIPIN ARROW [Suspect]
     Dosage: 5 MG, QD
     Route: 048
     Dates: start: 20130521, end: 20130523
  6. LOSARTAN [Suspect]
     Dosage: UNK
     Route: 048
     Dates: start: 20130523
  7. LOSARTAN/HCT [Concomitant]
  8. SERESTA [Concomitant]
     Dosage: 20 MG, QD
     Dates: start: 201209
  9. SERESTA [Concomitant]
     Dosage: 150 MG, QD
     Dates: start: 20130404
  10. SERESTA [Concomitant]
     Dosage: DOSAGE DECREASED
  11. SERESTA [Concomitant]
     Dosage: 150 MG, QD
     Dates: start: 20130603
  12. NOCTAMIDE [Concomitant]
     Dosage: UNK
     Dates: start: 2012
  13. DRIPTANE [Concomitant]
  14. ABILIFY [Concomitant]
     Dosage: 15 MG, EACH EVENING
     Dates: start: 20130404, end: 20130415
  15. VENLAFAXINE [Concomitant]
     Dosage: 225 MG, QD
     Dates: end: 20130404
  16. COLPOTROPHINE [Concomitant]
     Dosage: UNK
     Dates: end: 20130404
  17. LEPTICUR [Concomitant]
     Dosage: UNK
     Dates: start: 20130415, end: 20130430
  18. RISPERDAL [Concomitant]
     Dosage: 4 MG, QD
     Dates: end: 20130404
  19. DOLIPRANE [Concomitant]
     Dosage: UNK, PRN
     Dates: start: 20120827, end: 20130404

REACTIONS (1)
  - Hepatocellular injury [Recovered/Resolved]
